FAERS Safety Report 19964044 (Version 1)
Quarter: 2021Q4

REPORT INFORMATION
  Report Type: Spontaneous
  Country: DE (occurrence: DE)
  Receive Date: 20211018
  Receipt Date: 20211018
  Transmission Date: 20220304
  Serious: Yes (Hospitalization)
  Sender: FDA-Public Use
  Company Number: DE-ADRED-06809-01

PATIENT
  Age: 80 Year
  Sex: Male

DRUGS (6)
  1. HYDROCHLOROTHIAZIDE\METOPROLOL [Suspect]
     Active Substance: HYDROCHLOROTHIAZIDE\METOPROLOL
     Indication: Product used for unknown indication
     Dosage: (12.5/100 MG, 0-1-0-0)
     Route: 048
  2. TORSEMIDE [Suspect]
     Active Substance: TORSEMIDE
     Indication: Product used for unknown indication
     Dosage: 10 MILLIGRAM, QD (1-0-0-0)
     Route: 048
  3. EDOXABAN TOSYLATE [Suspect]
     Active Substance: EDOXABAN TOSYLATE
     Indication: Product used for unknown indication
     Dosage: 60 MILLIGRAM, QD (0-1-0-0)
     Route: 048
  4. TAXOFIT EISEN UND VITAMIN C [Concomitant]
     Dosage: UNK (50/50 MG, 1-0-0-0)
     Route: 048
  5. FEBUXOSTAT [Concomitant]
     Active Substance: FEBUXOSTAT
     Dosage: 80 MILLIGRAM, QD (1-0-0-0)
     Route: 048
  6. METFORMIN [Concomitant]
     Active Substance: METFORMIN HYDROCHLORIDE
     Dosage: 1000 MILLIGRAM, QD (1-0-0-0)
     Route: 048

REACTIONS (4)
  - Anaemia [Unknown]
  - Epistaxis [Unknown]
  - Cough [Unknown]
  - Oedema peripheral [Unknown]
